FAERS Safety Report 15095556 (Version 2)
Quarter: 2018Q3

REPORT INFORMATION
  Report Type: Spontaneous
  Country: US (occurrence: US)
  Receive Date: 20180702
  Receipt Date: 20180831
  Transmission Date: 20181010
  Serious: Yes (Life-Threatening, Hospitalization)
  Sender: FDA-Public Use
  Company Number: US-ABBVIE-18P-163-2405587-00

PATIENT
  Age: 70 Year
  Sex: Female

DRUGS (2)
  1. IDELALISIB [Concomitant]
     Active Substance: IDELALISIB
     Indication: LYMPHOMA
  2. VENCLEXTA [Suspect]
     Active Substance: VENETOCLAX
     Indication: CHRONIC LYMPHOCYTIC LEUKAEMIA
     Route: 048

REACTIONS (6)
  - Renal failure [Unknown]
  - Thrombocytopenia [Recovered/Resolved]
  - Lymphopenia [Not Recovered/Not Resolved]
  - Pleural effusion [Unknown]
  - Haemolytic anaemia [Recovered/Resolved]
  - Metabolic acidosis [Unknown]
